FAERS Safety Report 7634496-9 (Version None)
Quarter: 2011Q3

REPORT INFORMATION
  Report Type: 
  Country: None (occurrence: None)
  Receive Date: 20110725
  Receipt Date: 20110721
  Transmission Date: 20111222
  Serious: Yes (Hospitalization, Other)
  Sender: FDA-Public Use
  Company Number: DE-BAYER-2011-063652

PATIENT
  Sex: Female
  Weight: 75 kg

DRUGS (8)
  1. EXJADE [Concomitant]
  2. KLIOGEST [Concomitant]
     Dosage: 1 MG, QD
  3. PULMICORT [Concomitant]
     Dosage: UNK
     Dates: start: 20050413
  4. SERETIDE DISKUS [Concomitant]
  5. RAMIPRIL [Concomitant]
     Dosage: 1.25 MG, QD
  6. AVELOX [Suspect]
     Indication: BRONCHOPNEUMONIA
     Dosage: 400 MG, QID
     Route: 055
     Dates: start: 20110301
  7. OMEPRAZOLE [Concomitant]
     Dosage: UNK
     Dates: start: 20110222
  8. PANTOPRAZOLE [Concomitant]
     Dosage: UNK
     Dates: start: 20110222

REACTIONS (3)
  - HALLUCINATION [None]
  - CONFUSIONAL STATE [None]
  - CRYING [None]
